FAERS Safety Report 15352949 (Version 1)
Quarter: 2018Q3

REPORT INFORMATION
  Report Type: Spontaneous
  Country: US (occurrence: US)
  Receive Date: 20180905
  Receipt Date: 20180905
  Transmission Date: 20181010
  Serious: No
  Sender: FDA-Public Use
  Company Number: US-STRIDES ARCOLAB LIMITED-2018SP000947

PATIENT

DRUGS (2)
  1. BUSPIRONE HYDROCHLORIDE. [Suspect]
     Active Substance: BUSPIRONE HYDROCHLORIDE
     Indication: OESOPHAGEAL MOTILITY DISORDER
     Dosage: 10 MG OR PLACEBO BEFORE MEALS THREE TIMES DAILY
     Route: 065
  2. BUSPIRONE HYDROCHLORIDE. [Suspect]
     Active Substance: BUSPIRONE HYDROCHLORIDE
     Indication: DYSPHAGIA

REACTIONS (2)
  - Off label use [Unknown]
  - Nausea [Recovered/Resolved]
